FAERS Safety Report 7781853-6 (Version None)
Quarter: 2011Q3

REPORT INFORMATION
  Report Type: 
  Country: None (occurrence: None)
  Receive Date: 20110927
  Receipt Date: 20110921
  Transmission Date: 20111222
  Serious: Yes (Other)
  Sender: FDA-Public Use
  Company Number: US-CEPHALON-2009008578

PATIENT

DRUGS (2)
  1. TRISENOX [Suspect]
     Indication: MYELODYSPLASTIC SYNDROME
     Route: 041
  2. THALOMID [Suspect]
     Indication: MYELODYSPLASTIC SYNDROME

REACTIONS (4)
  - EXFOLIATIVE RASH [None]
  - FATIGUE [None]
  - NAUSEA [None]
  - DIARRHOEA [None]
